FAERS Safety Report 9383585 (Version 1)
Quarter: 2013Q3

REPORT INFORMATION
  Report Type: Spontaneous
  Country: US (occurrence: US)
  Receive Date: 20130704
  Receipt Date: 20130704
  Transmission Date: 20140515
  Serious: No
  Sender: FDA-Public Use
  Company Number: US-PFIZER INC-2013196785

PATIENT
  Age: 64 Year
  Sex: Female
  Weight: 68.03 kg

DRUGS (10)
  1. FLECTOR [Suspect]
     Indication: SPINAL COLUMN STENOSIS
     Dosage: UNK, DAILY
     Route: 062
     Dates: start: 2012
  2. DICLOFENAC [Suspect]
     Indication: SPINAL COLUMN STENOSIS
     Dosage: UNK
  3. LORTAB [Suspect]
     Indication: MOUTH INJURY
     Dosage: HYDROCODONE BITARTRATE (7.5MG)/PARACETAMOL (500 MG), THREE TO FOUR TIMES A DAY
  4. LORTAB [Suspect]
     Indication: TOOTH DISORDER
  5. LORTAB [Suspect]
     Indication: SPINAL COLUMN STENOSIS
  6. PERCOCET [Suspect]
     Indication: SPINAL COLUMN STENOSIS
     Dosage: UNK
  7. AVAPRO [Concomitant]
     Indication: BLOOD PRESSURE ABNORMAL
     Dosage: 300 MG, 1X/DAY
  8. HYDROCHLOROTHIAZIDE [Concomitant]
     Indication: BLOOD PRESSURE ABNORMAL
     Dosage: 25 MG, 1X/DAY
  9. POTASSIUM [Concomitant]
     Indication: BLOOD POTASSIUM ABNORMAL
     Dosage: UNK
  10. SYNTHROID [Concomitant]
     Dosage: 0.025 MG, UNK

REACTIONS (6)
  - Off label use [Not Recovered/Not Resolved]
  - Rash pruritic [Not Recovered/Not Resolved]
  - Purpura [Not Recovered/Not Resolved]
  - Blood triglycerides increased [Unknown]
  - Malabsorption [Unknown]
  - Gait disturbance [Unknown]
